FAERS Safety Report 4870533-2 (Version None)
Quarter: 2005Q4

REPORT INFORMATION
  Report Type: 
  Country: None (occurrence: None)
  Receive Date: 20051228
  Receipt Date: 20051216
  Transmission Date: 20060501
  Serious: Yes (Death)
  Sender: FDA-Public Use
  Company Number: MK200512-0326-1

PATIENT
  Age: 22 Year
  Sex: Male

DRUGS (3)
  1. OXYCODONE/APAP 5/325 TABLETS [Suspect]
  2. COCAINE [Concomitant]
  3. BENZODIAZEPINES [Concomitant]

REACTIONS (1)
  - DRUG SCREEN POSITIVE [None]
